FAERS Safety Report 6454559-3 (Version None)
Quarter: 2009Q4

REPORT INFORMATION
  Report Type: 
  Country: None (occurrence: None)
  Receive Date: 20091118
  Receipt Date: 20091111
  Transmission Date: 20100525
  Serious: Yes (Other)
  Sender: FDA-Public Use
  Company Number: TPA2009A03711

PATIENT

DRUGS (2)
  1. ULORIC [Suspect]
     Indication: GOUTY TOPHUS
     Dosage: PER ORAL
     Route: 048
     Dates: start: 20090101, end: 20090101
  2. ULORIC [Suspect]
     Indication: HYPERURICAEMIA
     Dosage: PER ORAL
     Route: 048
     Dates: start: 20090101, end: 20090101

REACTIONS (1)
  - CARDIAC FAILURE CONGESTIVE [None]
